FAERS Safety Report 9902981 (Version 1)
Quarter: 2014Q1

REPORT INFORMATION
  Report Type: Spontaneous
  Country: GR (occurrence: GR)
  Receive Date: 20140217
  Receipt Date: 20140217
  Transmission Date: 20141002
  Serious: Yes (Other)
  Sender: FDA-Public Use
  Company Number: PHHY2014GR015535

PATIENT
  Age: 71 Year
  Sex: Female

DRUGS (6)
  1. IMATINIB [Suspect]
     Indication: CHRONIC MYELOID LEUKAEMIA
     Dosage: 400 MG, DAILY
     Dates: start: 2008
  2. IMATINIB [Interacting]
     Dosage: 300 MG, DAILY
  3. DENOSUMAB [Interacting]
     Indication: OSTEOPOROSIS
     Dosage: 60 MG, UNK
     Route: 065
  4. ALENDRONIC ACID [Concomitant]
     Indication: OSTEOPOROSIS
     Dosage: 70 MG, PER WEEK
  5. ZOLEDRONATE [Concomitant]
     Indication: OSTEOPOROSIS
     Dosage: 4 MG, UNK
  6. TERIPARATIDE [Concomitant]
     Indication: OSTEOPOROSIS
     Route: 058

REACTIONS (11)
  - Osteonecrosis of jaw [Recovering/Resolving]
  - Pain in jaw [Unknown]
  - Swelling [Unknown]
  - Purulence [Unknown]
  - Loose tooth [Recovered/Resolved]
  - Exposed bone in jaw [Unknown]
  - Primary sequestrum [Unknown]
  - Inflammation [Unknown]
  - Bacterial infection [Unknown]
  - Anaemia [Recovered/Resolved]
  - Fatigue [Recovered/Resolved]
